FAERS Safety Report 7868036-6 (Version None)
Quarter: 2011Q4

REPORT INFORMATION
  Report Type: 
  Country: None (occurrence: None)
  Receive Date: 20111028
  Receipt Date: 20111024
  Transmission Date: 20120403
  Serious: Yes (Life-Threatening, Hospitalization, Other)
  Sender: FDA-Public Use
  Company Number: DE-ASTRAZENECA-2011SE55166

PATIENT
  Sex: Female
  Weight: 67 kg

DRUGS (5)
  1. SEROQUEL XR [Suspect]
     Indication: DEPRESSION
     Route: 048
     Dates: start: 20110525, end: 20110602
  2. SEROQUEL XR [Suspect]
     Route: 048
     Dates: start: 20110603
  3. UMLAFAXIN RETARD [Concomitant]
     Indication: DEPRESSION
     Route: 048
     Dates: start: 20110301
  4. PROMETHAZINE HCL [Concomitant]
     Indication: DEPRESSION
     Route: 048
  5. LORAZEPAM [Concomitant]
     Indication: DEPRESSION
     Route: 048
     Dates: start: 20110301

REACTIONS (2)
  - MULTIPLE DRUG OVERDOSE [None]
  - SUICIDE ATTEMPT [None]
